FAERS Safety Report 14685065 (Version 1)
Quarter: 2018Q1

REPORT INFORMATION
  Report Type: Spontaneous
  Country: DK (occurrence: DK)
  Receive Date: 20180327
  Receipt Date: 20180327
  Transmission Date: 20180509
  Serious: Yes (Life-Threatening)
  Sender: FDA-Public Use
  Company Number: DK-PFIZER INC-2018124629

PATIENT
  Age: 49 Year
  Sex: Female
  Weight: 64 kg

DRUGS (2)
  1. IBRANCE [Suspect]
     Active Substance: PALBOCICLIB
     Indication: BREAST CANCER METASTATIC
     Dosage: DOSE: 100 MG/DAY, THREE WEEKS TREATMENT ONE WEEKS PAUSE
     Route: 048
     Dates: start: 20170815
  2. FASLODEX [Suspect]
     Active Substance: FULVESTRANT
     Indication: BREAST CANCER METASTATIC
     Dosage: 500 MG, EVERY 4 WEEKS
     Route: 030

REACTIONS (1)
  - Iliac artery embolism [Recovering/Resolving]

NARRATIVE: CASE EVENT DATE: 20180204
